FAERS Safety Report 8540884-9 (Version None)
Quarter: 2012Q3

REPORT INFORMATION
  Report Type: 
  Country: None (occurrence: None)
  Receive Date: 20120726
  Receipt Date: 20120723
  Transmission Date: 20120928
  Serious: No
  Sender: FDA-Public Use
  Company Number: US-PFIZER INC-2012130460

PATIENT
  Sex: Female

DRUGS (3)
  1. CHANTIX [Suspect]
     Indication: SMOKING CESSATION THERAPY
     Dosage: UNK, TWICE DAILY
     Route: 048
     Dates: start: 20120501, end: 20120501
  2. CHANTIX [Suspect]
     Dosage: 1 MG, 2X/DAY
     Route: 048
     Dates: start: 20120501, end: 20120530
  3. JANUVIA [Concomitant]
     Indication: DIABETES MELLITUS
     Dosage: 100 MG, DAILY

REACTIONS (4)
  - DRUG INTOLERANCE [None]
  - NAUSEA [None]
  - VOMITING [None]
  - MALAISE [None]
